FAERS Safety Report 15564391 (Version 1)
Quarter: 2018Q4

REPORT INFORMATION
  Report Type: Spontaneous
  Country: US (occurrence: US)
  Receive Date: 20181030
  Receipt Date: 20181030
  Transmission Date: 20190205
  Serious: No
  Sender: FDA-Public Use
  Company Number: US-BIOGEN-2016BI00316793

PATIENT
  Age: 15 Year
  Sex: Female

DRUGS (2)
  1. TECFIDERA [Suspect]
     Active Substance: DIMETHYL FUMARATE
     Indication: MULTIPLE SCLEROSIS
     Dosage: MAINTENANCE DOSE
     Route: 048
     Dates: start: 20131101, end: 20131231
  2. TECFIDERA [Suspect]
     Active Substance: DIMETHYL FUMARATE
     Route: 065
     Dates: start: 20131127

REACTIONS (7)
  - Gastric disorder [Recovered/Resolved]
  - Depression [Recovered/Resolved]
  - Ligament sprain [Not Recovered/Not Resolved]
  - Memory impairment [Unknown]
  - Accident [Not Recovered/Not Resolved]
  - Product administered to patient of inappropriate age [Unknown]
  - Multiple sclerosis relapse [Recovered/Resolved]

NARRATIVE: CASE EVENT DATE: 20131101
